FAERS Safety Report 9703407 (Version 2)
Quarter: 2013Q4

REPORT INFORMATION
  Report Type: Spontaneous
  Country: IT (occurrence: IT)
  Receive Date: 20131122
  Receipt Date: 20131202
  Transmission Date: 20140711
  Serious: Yes (Hospitalization)
  Sender: FDA-Public Use
  Company Number: PHHY2013IT133701

PATIENT
  Age: 54 Year
  Sex: Female

DRUGS (5)
  1. FEMARA [Suspect]
     Indication: ENDOMETRIAL STROMAL SARCOMA
     Dosage: 01 POSOLOGICAL UNIT, DAILY
     Route: 048
     Dates: start: 20131015, end: 20131113
  2. DICLOREUM [Suspect]
     Indication: PAIN
     Dosage: 3 POSOLOGICAL UNIT, TOTAL
     Route: 048
     Dates: start: 20131104, end: 20131109
  3. TORA DOL [Suspect]
     Indication: PAIN
     Dosage: 2 POSOLOGICAL UNIT, TOTAL
     Route: 030
     Dates: start: 20131104, end: 20131109
  4. CITALOPRAM [Concomitant]
     Dosage: UNK UKN, UNK
  5. EUTIROX [Concomitant]
     Dosage: UNK UKN, UNK

REACTIONS (1)
  - Renal failure acute [Unknown]
